FAERS Safety Report 5312536-X (Version None)
Quarter: 2007Q2

REPORT INFORMATION
  Report Type: 
  Country: None (occurrence: None)
  Receive Date: 20070430
  Receipt Date: 20070118
  Transmission Date: 20071010
  Serious: No
  Sender: FDA-Public Use
  Company Number: 2007UW00957

PATIENT
  Age: 58 Year
  Sex: Female
  Weight: 65.8 kg

DRUGS (3)
  1. NEXIUM [Suspect]
     Route: 048
     Dates: start: 20061101
  2. TOPROL-XL [Concomitant]
     Route: 048
  3. REGLAN [Concomitant]

REACTIONS (2)
  - DRY SKIN [None]
  - SWELLING FACE [None]
